FAERS Safety Report 14441871 (Version 2)
Quarter: 2018Q1

REPORT INFORMATION
  Report Type: Spontaneous
  Country: US (occurrence: US)
  Receive Date: 20180125
  Receipt Date: 20180214
  Transmission Date: 20180509
  Serious: Yes (Other)
  Sender: FDA-Public Use
  Company Number: US-IMPAX LABORATORIES, INC-2018-IPXL-00171

PATIENT
  Age: 28 Year
  Sex: Female

DRUGS (1)
  1. GRISEOFULVIN ULTRAMICROSIZE [Suspect]
     Active Substance: GRISEOFULVIN
     Indication: DERMATOPHYTOSIS OF NAIL
     Dosage: UNK
     Route: 065

REACTIONS (2)
  - Focal segmental glomerulosclerosis [Recovering/Resolving]
  - Acute kidney injury [Recovering/Resolving]
